FAERS Safety Report 21578438 (Version 1)
Quarter: 2022Q4

REPORT INFORMATION
  Report Type: Spontaneous
  Country: US (occurrence: None)
  Receive Date: 20221110
  Receipt Date: 20221110
  Transmission Date: 20230112
  Serious: Yes (Hospitalization)
  Sender: FDA-Public Use
  Company Number: None

PATIENT
  Age: 73 Year
  Sex: Male
  Weight: 90.7 kg

DRUGS (1)
  1. RUXOLITINIB [Suspect]
     Active Substance: RUXOLITINIB
     Indication: Myeloproliferative neoplasm
     Dosage: FREQUENCY : TWICE A DAY;?
     Route: 048
     Dates: start: 20221005, end: 20221102

REACTIONS (2)
  - Face oedema [None]
  - Oedema peripheral [None]

NARRATIVE: CASE EVENT DATE: 20221102
